FAERS Safety Report 9055540 (Version 1)
Quarter: 2013Q1

REPORT INFORMATION
  Report Type: Spontaneous
  Country: JP (occurrence: JP)
  Receive Date: 20130206
  Receipt Date: 20130206
  Transmission Date: 20140127
  Serious: Yes (Other)
  Sender: FDA-Public Use
  Company Number: JP-GLAXOSMITHKLINE-B0865008A

PATIENT
  Age: 80 Year
  Sex: Male

DRUGS (2)
  1. AVOLVE [Suspect]
     Indication: BENIGN PROSTATIC HYPERPLASIA
     Dosage: .5MG PER DAY
     Route: 048
     Dates: start: 20130120
  2. URIEF [Concomitant]
     Route: 048

REACTIONS (2)
  - Haematochezia [Unknown]
  - Haemorrhoids [Unknown]
